FAERS Safety Report 9945023 (Version 1)
Quarter: 2014Q1

REPORT INFORMATION
  Report Type: Report from Study
  Country: US (occurrence: US)
  Receive Date: 20140303
  Receipt Date: 20140303
  Transmission Date: 20141002
  Serious: No
  Sender: FDA-Public Use
  Company Number: US-ABBVIE-13P-163-1055107-00

PATIENT
  Age: 59 Year
  Sex: Female

DRUGS (7)
  1. HUMIRA [Suspect]
     Indication: PSORIASIS
     Dates: start: 20121126
  2. TOPAMAX [Concomitant]
     Indication: MIGRAINE
     Dosage: 50 MG DAILY
     Route: 048
  3. WELLBUTRIN [Concomitant]
     Indication: MIGRAINE
     Route: 048
  4. OMEPRAZOLE [Concomitant]
     Indication: GASTROOESOPHAGEAL REFLUX DISEASE
     Route: 048
  5. BABY ASPIRIN [Concomitant]
     Indication: PROPHYLAXIS
     Route: 048
  6. SULINDAC [Concomitant]
     Indication: BURSITIS
     Dosage: 200 MG, 2 TABS DAILY
     Route: 048
  7. TRAMADOL [Concomitant]
     Indication: BACK PAIN
     Route: 048

REACTIONS (1)
  - Arthralgia [Not Recovered/Not Resolved]
